FAERS Safety Report 5418588-0 (Version None)
Quarter: 2007Q3

REPORT INFORMATION
  Report Type: 
  Country: None (occurrence: None)
  Receive Date: 20070817
  Receipt Date: 20070809
  Transmission Date: 20080115
  Serious: Yes (Other)
  Sender: FDA-Public Use
  Company Number: BR-PFIZER INC-2007057774

PATIENT
  Sex: Female
  Weight: 70 kg

DRUGS (6)
  1. DETRUSITOL [Suspect]
     Indication: MICTURITION URGENCY
     Route: 048
  2. DETRUSITOL [Suspect]
     Route: 048
  3. SUSTRATE [Concomitant]
  4. PLAVIX [Concomitant]
     Dosage: DAILY DOSE:75MG-TEXT:DAILY
     Route: 048
  5. ADALAT [Concomitant]
  6. ATENOLOL [Concomitant]
     Indication: HYPERTENSION
     Route: 048

REACTIONS (3)
  - BLOOD PRESSURE INCREASED [None]
  - DRUG INEFFECTIVE [None]
  - RENAL IMPAIRMENT [None]
